FAERS Safety Report 17253748 (Version 2)
Quarter: 2020Q1

REPORT INFORMATION
  Report Type: Spontaneous
  Country: FR (occurrence: FR)
  Receive Date: 20200109
  Receipt Date: 20200113
  Transmission Date: 20200409
  Serious: Yes (Death, Hospitalization)
  Sender: FDA-Public Use
  Company Number: FR-MYLANLABS-2020M1002871

PATIENT
  Age: 62 Year
  Sex: Male

DRUGS (5)
  1. BELUSTINE [Suspect]
     Active Substance: LOMUSTINE
     Indication: GLIOBLASTOMA
     Dosage: 200 MILLIGRAM, CYCLE
     Route: 048
     Dates: start: 20180212, end: 20181010
  2. LANTUS [Suspect]
     Active Substance: INSULIN GLARGINE
     Indication: TYPE 2 DIABETES MELLITUS
     Dosage: 40 MILLIGRAM, QD (40 MG/JOUR LE MATIN)
     Route: 058
     Dates: start: 201810
  3. PREDNISONE. [Suspect]
     Active Substance: PREDNISONE
     Indication: PRODUCT USED FOR UNKNOWN INDICATION
     Dosage: 40 MILLIGRAM, QD (40 MG/JOUR LE MATIN)
     Route: 048
     Dates: start: 20171024
  4. AVASTIN [Suspect]
     Active Substance: BEVACIZUMAB
     Indication: GLIOBLASTOMA
     Dosage: 10 MILLIGRAM/KILOGRAM, CYCLE
     Route: 042
     Dates: start: 20180307, end: 20190612
  5. KEPPRA [Suspect]
     Active Substance: LEVETIRACETAM
     Indication: GLIOBLASTOMA
     Dosage: 1000 MILLIGRAM, QD (500 MG MATIN ET SOIR)
     Route: 048
     Dates: start: 20180109

REACTIONS (2)
  - Acute hepatic failure [Fatal]
  - Cholestasis [Not Recovered/Not Resolved]

NARRATIVE: CASE EVENT DATE: 20181105
